FAERS Safety Report 4559150-1 (Version None)
Quarter: 2005Q1

REPORT INFORMATION
  Report Type: 
  Country: None (occurrence: None)
  Receive Date: 20050121
  Receipt Date: 20050121
  Transmission Date: 20050727
  Serious: Yes (Life-Threatening)
  Sender: FDA-Public Use
  Company Number: None

PATIENT
  Age: 59 Year
  Sex: Male
  Weight: 86.1834 kg

DRUGS (7)
  1. CLOSYS II TOOTHPASTE    ROPAR PHARM [Suspect]
     Indication: COLON CANCER
     Dosage: CLOSYS TOOTH   4 TIMES DAILY   ORAL
     Route: 048
     Dates: start: 19961101, end: 20050118
  2. CLOSYS II MOUTHWASH    ROPAR PHARM [Suspect]
     Indication: COLON CANCER
     Dosage: CLOSYS MOUTH   2 TIMES DAILY    OROPHARING
     Route: 049
     Dates: start: 19961101, end: 20050118
  3. ALLEGRA [Concomitant]
  4. AZMACORT [Concomitant]
  5. ALBUTEROL [Concomitant]
  6. PREVACID [Concomitant]
  7. ADVIL [Concomitant]

REACTIONS (3)
  - COLON CANCER [None]
  - METASTASES TO LUNG [None]
  - PHARMACEUTICAL PRODUCT COMPLAINT [None]
